FAERS Safety Report 7236660-X (Version None)
Quarter: 2011Q1

REPORT INFORMATION
  Report Type: 
  Country: None (occurrence: None)
  Receive Date: 20110120
  Receipt Date: 20110114
  Transmission Date: 20110831
  Serious: Yes (Other)
  Sender: FDA-Public Use
  Company Number: FR-PFIZER INC-2011009377

PATIENT
  Age: 85 Year
  Sex: Female

DRUGS (6)
  1. NEBIVOLOL [Concomitant]
  2. EFFEXOR [Concomitant]
  3. TRIVASTAL [Concomitant]
  4. ZITHROMAX [Suspect]
     Dosage: 250 MG/DAY
  5. PULMICORT [Concomitant]
  6. NOCTAMID [Concomitant]

REACTIONS (1)
  - HALLUCINATION [None]
